FAERS Safety Report 11387563 (Version 2)
Quarter: 2015Q4

REPORT INFORMATION
  Report Type: Spontaneous
  Country: GB (occurrence: GB)
  Receive Date: 20150817
  Receipt Date: 20151014
  Transmission Date: 20160304
  Serious: Yes (Hospitalization)
  Sender: FDA-Public Use
  Company Number: GB-ACTAVIS-2015-17246

PATIENT
  Age: 4 Year
  Sex: Male

DRUGS (2)
  1. IBUPROFEN (UNKNOWN) [Suspect]
     Active Substance: IBUPROFEN
     Indication: PRODUCT USED FOR UNKNOWN INDICATION
     Dosage: UNK (10MG/KG)
     Route: 065
  2. PARACETAMOL  (UNKNOWN) [Suspect]
     Active Substance: ACETAMINOPHEN
     Indication: PRODUCT USED FOR UNKNOWN INDICATION
     Dosage: UNK
     Route: 065

REACTIONS (5)
  - Cough [Unknown]
  - Rhinitis [Unknown]
  - Wheezing [Unknown]
  - Lip swelling [Unknown]
  - Periorbital oedema [Unknown]

NARRATIVE: CASE EVENT DATE: 20150609
